FAERS Safety Report 20277947 (Version 1)
Quarter: 2022Q1

REPORT INFORMATION
  Report Type: Spontaneous
  Country: US (occurrence: US)
  Receive Date: 20220103
  Receipt Date: 20220103
  Transmission Date: 20220423
  Serious: No
  Sender: FDA-Public Use
  Company Number: US-SA-SAC20211227000494

PATIENT
  Sex: Male

DRUGS (4)
  1. DUPIXENT [Suspect]
     Active Substance: DUPILUMAB
     Indication: Dermatitis atopic
     Dosage: 300 MG, QOW
     Route: 058
  2. PFIZER-BIONTECH COVID-19 VACCINE [Suspect]
     Active Substance: TOZINAMERAN
  3. ELIDEL [Concomitant]
     Active Substance: PIMECROLIMUS
  4. TRIAMCINOLONE [Concomitant]
     Active Substance: TRIAMCINOLONE

REACTIONS (7)
  - Abdominal discomfort [Unknown]
  - Dizziness [Unknown]
  - Small fibre neuropathy [Unknown]
  - Pruritus [Unknown]
  - Taste disorder [Unknown]
  - Vaccination complication [Unknown]
  - Eczema [Unknown]

NARRATIVE: CASE EVENT DATE: 20211201
